FAERS Safety Report 7748112-9 (Version None)
Quarter: 2011Q3

REPORT INFORMATION
  Report Type: 
  Country: None (occurrence: None)
  Receive Date: 20110913
  Receipt Date: 20110524
  Transmission Date: 20111222
  Serious: No
  Sender: FDA-Public Use
  Company Number: US-ALLERGAN-1107104US

PATIENT
  Age: 22 Year
  Sex: Female

DRUGS (2)
  1. ACZONE [Suspect]
     Indication: ACNE
     Dosage: 1 DF, QHS
     Route: 061
     Dates: start: 20110501
  2. SOLODYN [Concomitant]
     Indication: ACNE
     Dosage: 1 DF, UNK
     Route: 048
     Dates: start: 20110501

REACTIONS (1)
  - ACNE [None]
